FAERS Safety Report 21848877 (Version 2)
Quarter: 2023Q2

REPORT INFORMATION
  Report Type: Spontaneous
  Country: AU (occurrence: AU)
  Receive Date: 20230111
  Receipt Date: 20230413
  Transmission Date: 20230722
  Serious: Yes (Other)
  Sender: FDA-Public Use
  Company Number: AU-PFIZER INC-202300008640

PATIENT
  Age: 66 Year
  Sex: Female
  Weight: 88 kg

DRUGS (14)
  1. PAXLOVID [Suspect]
     Active Substance: NIRMATRELVIR\RITONAVIR
     Indication: COVID-19 treatment
     Dosage: UNK UNK, 2X/DAY
     Route: 048
     Dates: start: 20221223, end: 20221226
  2. NALOXONE HYDROCHLORIDE\OXYCODONE HYDROCHLORIDE [Concomitant]
     Active Substance: NALOXONE HYDROCHLORIDE\OXYCODONE HYDROCHLORIDE
     Dosage: TAKE ONCE OR TWICE A DAY
  3. ACETAMINOPHEN [Concomitant]
     Active Substance: ACETAMINOPHEN
     Dosage: UNK (PARACETAMOL 500)
  4. PAROXETINE [Concomitant]
     Active Substance: PAROXETINE
     Dosage: 1 DF, 1X/DAY(IN THE MORNING)
  5. SOZOL [Concomitant]
     Dosage: UNK
  6. FUROSEMIDE [Concomitant]
     Active Substance: FUROSEMIDE
     Dosage: UNK
  7. INNER HEALTH [LACTOBACILLUS ACIDOPHILUS] [Concomitant]
     Dosage: UNK
  8. BUDESONIDE [Concomitant]
     Active Substance: BUDESONIDE
     Dosage: UNK
  9. DIAZEPAM [Concomitant]
     Active Substance: DIAZEPAM
     Dosage: UNK, DAILY
  10. LEVOTHYROXINE [Concomitant]
     Active Substance: LEVOTHYROXINE
     Dosage: 1 DF, 1X/DAY(1 TABLET IN THE MORNING BEFORE MEALS)
  11. PANAMAX [PARACETAMOL] [Concomitant]
     Dosage: 1-2 TABS EVERY 4-6 HRS; MAX 8 TABS/DAY
  12. PANTOPRAZOLE [Concomitant]
     Active Substance: PANTOPRAZOLE
     Dosage: 1 DF, 1X/DAY(IN THE MORNING)
  13. POLY-TEARS [Concomitant]
     Dosage: 1 DF, DAILY(1 DROP DAILY P.R.N)
  14. ALBUTEROL SULFATE [Concomitant]
     Active Substance: ALBUTEROL SULFATE
     Dosage: 1-2 EVERY 4 HOURS P.R.N.

REACTIONS (12)
  - Chest discomfort [Recovered/Resolved]
  - Gastrooesophageal reflux disease [Recovered/Resolved]
  - Oesophageal pain [Recovered/Resolved]
  - Oral mucosal blistering [Recovered/Resolved]
  - Stomatitis [Recovered/Resolved]
  - Muscle spasms [Recovered/Resolved]
  - Dizziness [Recovered/Resolved]
  - Arthralgia [Recovered/Resolved]
  - Hypotension [Recovered/Resolved]
  - Neck pain [Recovered/Resolved]
  - Headache [Recovered/Resolved]
  - Incorrect product administration duration [Unknown]

NARRATIVE: CASE EVENT DATE: 20221201
